FAERS Safety Report 13996343 (Version 2)
Quarter: 2017Q4

REPORT INFORMATION
  Report Type: Report from Study
  Country: None (occurrence: CA)
  Receive Date: 20170921
  Receipt Date: 20171218
  Transmission Date: 20180321
  Serious: Yes (Hospitalization)
  Sender: FDA-Public Use
  Company Number: CA-ABBVIE-17K-028-2106813-00

PATIENT
  Sex: Female

DRUGS (3)
  1. CORTISONE [Concomitant]
     Active Substance: CORTISONE\HYDROCORTISONE
     Indication: PRODUCT USED FOR UNKNOWN INDICATION
  2. HUMIRA [Suspect]
     Active Substance: ADALIMUMAB
     Route: 058
     Dates: start: 201706
  3. HUMIRA [Suspect]
     Active Substance: ADALIMUMAB
     Indication: CROHN^S DISEASE
     Route: 058
     Dates: start: 20161223, end: 201706

REACTIONS (4)
  - Sleep apnoea syndrome [Not Recovered/Not Resolved]
  - Hypoxia [Unknown]
  - Respiratory failure [Not Recovered/Not Resolved]
  - Gastrointestinal inflammation [Recovering/Resolving]

NARRATIVE: CASE EVENT DATE: 2017
